FAERS Safety Report 14133340 (Version 1)
Quarter: 2017Q4

REPORT INFORMATION
  Report Type: Spontaneous
  Country: US (occurrence: US)
  Receive Date: 20171026
  Receipt Date: 20171026
  Transmission Date: 20180321
  Serious: No
  Sender: FDA-Public Use
  Company Number: US-BAUSCH-BL-2017-025899

PATIENT
  Sex: Male
  Weight: 61.29 kg

DRUGS (3)
  1. ELIDEL [Suspect]
     Active Substance: PIMECROLIMUS
     Indication: ERYTHEMA
     Dosage: ONCE NIGHTLY AT BEDTIME
     Route: 061
     Dates: start: 2015, end: 2015
  2. ELIDEL [Suspect]
     Active Substance: PIMECROLIMUS
     Dosage: USED COUPLE OF TIMES IN A WEEK
     Route: 061
     Dates: start: 2017
  3. ELIDEL [Suspect]
     Active Substance: PIMECROLIMUS
     Indication: PRURITUS
     Route: 061
     Dates: start: 2016, end: 2016

REACTIONS (2)
  - Oropharyngeal pain [Recovered/Resolved]
  - Rhinorrhoea [Not Recovered/Not Resolved]

NARRATIVE: CASE EVENT DATE: 2015
